FAERS Safety Report 6760503-1 (Version None)
Quarter: 2010Q2

REPORT INFORMATION
  Report Type: 
  Country: None (occurrence: None)
  Receive Date: 20100608
  Receipt Date: 20100525
  Transmission Date: 20101027
  Serious: Yes (Hospitalization)
  Sender: FDA-Public Use
  Company Number: BE-JNJFOC-20100601983

PATIENT
  Sex: Female
  Weight: 45 kg

DRUGS (9)
  1. REMICADE [Suspect]
     Indication: CROHN'S DISEASE
     Route: 042
  2. REMICADE [Suspect]
     Route: 042
  3. BUDENOFALK [Concomitant]
     Indication: CROHN'S DISEASE
  4. IMURAN [Concomitant]
     Indication: CROHN'S DISEASE
  5. MOTILIUM [Concomitant]
     Indication: VOMITING
  6. TRAZOLAN [Concomitant]
     Indication: DEPRESSION
  7. REMERGON [Concomitant]
     Indication: DEPRESSION
  8. ZOLPIDEM [Concomitant]
     Indication: INSOMNIA
  9. PANTOZOL [Concomitant]
     Indication: GASTRITIS

REACTIONS (2)
  - GASTRODUODENAL ULCER [None]
  - KLEBSIELLA INFECTION [None]
